FAERS Safety Report 8545188-6 (Version None)
Quarter: 2012Q3

REPORT INFORMATION
  Report Type: 
  Country: None (occurrence: None)
  Receive Date: 20120727
  Receipt Date: 20120717
  Transmission Date: 20120928
  Serious: Yes (Other)
  Sender: FDA-Public Use
  Company Number: GB-ROCHE-1089303

PATIENT
  Sex: Female

DRUGS (1)
  1. MABTHERA [Suspect]
     Indication: RHEUMATOID ARTHRITIS

REACTIONS (6)
  - PAIN IN EXTREMITY [None]
  - PARAESTHESIA [None]
  - INFUSION SITE ERYTHEMA [None]
  - INFECTION [None]
  - ARTHROPATHY [None]
  - OEDEMA PERIPHERAL [None]
